FAERS Safety Report 19599708 (Version 1)
Quarter: 2021Q3

REPORT INFORMATION
  Report Type: Spontaneous
  Country: IL (occurrence: IL)
  Receive Date: 20210722
  Receipt Date: 20210722
  Transmission Date: 20211014
  Serious: Yes (Other)
  Sender: FDA-Public Use
  Company Number: NVSC2021IL157650

PATIENT
  Age: 45 Year
  Sex: Female

DRUGS (4)
  1. AMFETAMINE ASPARTATE MONOHYDRATE [Concomitant]
     Indication: PRODUCT USED FOR UNKNOWN INDICATION
     Dosage: UNK
     Route: 065
  2. FAMPYRA [Concomitant]
     Active Substance: DALFAMPRIDINE
     Indication: PRODUCT USED FOR UNKNOWN INDICATION
     Dosage: UNK
     Route: 065
  3. MAYZENT [Suspect]
     Active Substance: SIPONIMOD
     Indication: RELAPSING-REMITTING MULTIPLE SCLEROSIS
     Dosage: UNK
     Route: 065
     Dates: start: 2019
  4. PROVIGIL [Interacting]
     Active Substance: MODAFINIL
     Indication: PRODUCT USED FOR UNKNOWN INDICATION
     Dosage: UNK
     Route: 065

REACTIONS (12)
  - Gait disturbance [Unknown]
  - Multiple sclerosis relapse [Unknown]
  - Lymphocyte count decreased [Not Recovered/Not Resolved]
  - Muscular weakness [Unknown]
  - Gait inability [Unknown]
  - Product use in unapproved indication [Unknown]
  - Relapsing-remitting multiple sclerosis [Unknown]
  - Muscle spasticity [Unknown]
  - Drug interaction [Unknown]
  - Therapeutic response unexpected [Unknown]
  - Disease progression [Unknown]
  - Fatigue [Unknown]

NARRATIVE: CASE EVENT DATE: 202012
